FAERS Safety Report 21293302 (Version 1)
Quarter: 2022Q3

REPORT INFORMATION
  Report Type: Spontaneous
  Country: FR (occurrence: FR)
  Receive Date: 20220905
  Receipt Date: 20220905
  Transmission Date: 20221027
  Serious: Yes (Other)
  Sender: FDA-Public Use
  Company Number: None

PATIENT
  Age: 95 Year
  Sex: Female
  Weight: 45.8 kg

DRUGS (14)
  1. FUROSEMIDE [Suspect]
     Active Substance: FUROSEMIDE
     Indication: Cardiovascular disorder
     Dosage: 40MG, AT 2 MORNING AND 2 NOON
     Dates: start: 20220216
  2. MIANSERIN HYDROCHLORIDE [Concomitant]
     Active Substance: MIANSERIN HYDROCHLORIDE
  3. ALPRAZOLAM [Concomitant]
     Active Substance: ALPRAZOLAM
  4. LEVOTHYROXINE [Concomitant]
     Active Substance: LEVOTHYROXINE
     Dosage: 25 MICROGRAMS, SCORED TABLET
  5. Lamaline [Concomitant]
  6. Transipeg [Concomitant]
  7. ZOPICLONE [Concomitant]
     Active Substance: ZOPICLONE
  8. CHOLECALCIFEROL [Concomitant]
     Active Substance: CHOLECALCIFEROL
     Dosage: ZYMAD 50,000 IU, ORAL SOLUTION IN AMPOULE
  9. POTASSIUM CHLORIDE [Concomitant]
     Active Substance: POTASSIUM CHLORIDE
     Dosage: 600 MG
  10. ASPIRIN [Concomitant]
     Active Substance: ASPIRIN
     Dosage: 100 MG
  11. CARBOMER [Concomitant]
     Active Substance: CARBOMER
     Dosage: OPHTHALMIC GEL
  12. GYDRELLE [Concomitant]
  13. CANDESARTAN CILEXETIL [Concomitant]
     Active Substance: CANDESARTAN CILEXETIL
  14. OMEPRAZOLE [Concomitant]
     Active Substance: OMEPRAZOLE

REACTIONS (1)
  - Acute kidney injury [Recovered/Resolved]

NARRATIVE: CASE EVENT DATE: 20220301
